FAERS Safety Report 11012408 (Version 1)
Quarter: 2015Q2

REPORT INFORMATION
  Report Type: Spontaneous
  Country: US (occurrence: None)
  Receive Date: 20150410
  Receipt Date: 20150410
  Transmission Date: 20150821
  Serious: Yes (Hospitalization)
  Sender: FDA-Public Use
  Company Number: None

PATIENT
  Age: 43 Year
  Sex: Male
  Weight: 79.1 kg

DRUGS (1)
  1. TERBINAFINE [Suspect]
     Active Substance: TERBINAFINE
     Dates: start: 20141117, end: 20141217

REACTIONS (5)
  - Pain [None]
  - Malaise [None]
  - Chills [None]
  - Pyrexia [None]
  - Stevens-Johnson syndrome [None]

NARRATIVE: CASE EVENT DATE: 20141217
